FAERS Safety Report 20813736 (Version 2)
Quarter: 2022Q2

REPORT INFORMATION
  Report Type: Spontaneous
  Country: US (occurrence: US)
  Receive Date: 20220511
  Receipt Date: 20220519
  Transmission Date: 20220721
  Serious: Yes (Hospitalization)
  Sender: FDA-Public Use
  Company Number: US-JNJFOC-20220516879

PATIENT
  Age: 39 Year
  Sex: Male
  Weight: 83.9 kg

DRUGS (13)
  1. DARATUMUMAB [Suspect]
     Active Substance: DARATUMUMAB
     Indication: Plasma cell myeloma
     Route: 058
     Dates: start: 20210816, end: 20211007
  2. TECLISTAMAB [Suspect]
     Active Substance: TECLISTAMAB
     Indication: Plasma cell myeloma
     Dosage: 2.9 ML
     Route: 058
     Dates: start: 20210817, end: 20220421
  3. POMALIDOMIDE [Suspect]
     Active Substance: POMALIDOMIDE
     Route: 048
     Dates: start: 20210925, end: 20220407
  4. OSCAL D [CALCIUM CARBONATE;VITAMIN D NOS] [Concomitant]
     Indication: Prophylaxis
     Route: 048
     Dates: start: 20180605
  5. MEPRON [Concomitant]
     Active Substance: ATOVAQUONE
     Indication: Prophylaxis
     Route: 048
  6. ZOVIRAX [Concomitant]
     Active Substance: ACYCLOVIR
     Indication: Prophylaxis
     Route: 048
     Dates: start: 20210826
  7. PREVACID [Concomitant]
     Active Substance: LANSOPRAZOLE
     Indication: Gastrooesophageal reflux disease
     Route: 048
     Dates: start: 20210826
  8. ASPIRIN [Concomitant]
     Active Substance: ASPIRIN
     Indication: Prophylaxis
     Route: 048
     Dates: start: 20210923
  9. PRIMAQUINE [Concomitant]
     Active Substance: PRIMAQUINE
     Dosage: CONTINUE FOR 3 WEEKS TILL 26-MAY-2022
     Route: 048
     Dates: start: 20220506
  10. CLINDAMYCIN [Concomitant]
     Active Substance: CLINDAMYCIN
     Dosage: CONTINUE FOR 3 WEEKS TILL 26-MAY-2022
     Route: 048
     Dates: start: 20220506
  11. PREDNISONE [Concomitant]
     Active Substance: PREDNISONE
     Route: 048
     Dates: start: 20220506, end: 20220510
  12. PREDNISONE [Concomitant]
     Active Substance: PREDNISONE
     Route: 048
     Dates: end: 20220515
  13. PREDNISONE [Concomitant]
     Active Substance: PREDNISONE
     Dosage: CONTINUE FOR 11 DAYS TILL 26-MAY-2022
     Route: 048
     Dates: start: 20220516

REACTIONS (1)
  - Pneumocystis jirovecii pneumonia [Not Recovered/Not Resolved]

NARRATIVE: CASE EVENT DATE: 20220502
